FAERS Safety Report 11141215 (Version 1)
Quarter: 2015Q2

REPORT INFORMATION
  Report Type: Spontaneous
  Country: US (occurrence: None)
  Receive Date: 20150526
  Receipt Date: 20150526
  Transmission Date: 20150821
  Serious: Yes (Life-Threatening, Hospitalization, Disabling, Congenital Anomaly, Other)
  Sender: FDA-Public Use
  Company Number: None

PATIENT
  Sex: Female
  Weight: 3.18 kg

DRUGS (12)
  1. CALCIFEROL [Concomitant]
     Active Substance: ERGOCALCIFEROL
  2. COUMADIN [Suspect]
     Active Substance: WARFARIN SODIUM
     Indication: CARDIAC VALVE PROSTHESIS USER
     Dosage: 1 TO 1.5 TABLET DAILY OR AS DIRECTED BY DR. BY MOUTH
     Route: 048
     Dates: start: 1989
  3. TYLENOL [Concomitant]
     Active Substance: ACETAMINOPHEN
  4. COUMADIN [Suspect]
     Active Substance: WARFARIN SODIUM
     Indication: THROMBOSIS PROPHYLAXIS
     Dosage: 1 TO 1.5 TABLET DAILY OR AS DIRECTED BY DR. BY MOUTH
     Route: 048
     Dates: start: 1989
  5. FYCOMPA [Concomitant]
     Active Substance: PERAMPANEL
  6. CETIRIZINE [Concomitant]
     Active Substance: CETIRIZINE HYDROCHLORIDE
  7. ORASTAT [Concomitant]
  8. DILANTIN [Concomitant]
     Active Substance: PHENYTOIN
  9. CLONAZEPAM. [Concomitant]
     Active Substance: CLONAZEPAM
  10. MIRALAX [Concomitant]
     Active Substance: POLYETHYLENE GLYCOL 3350
  11. CULTURELLE [Concomitant]
     Active Substance: LACTOBACILLUS RHAMNOSUS
  12. CALCIUM [Concomitant]
     Active Substance: CALCIUM

REACTIONS (2)
  - Congenital tuberculosis [None]
  - Maternal drugs affecting foetus [None]
